FAERS Safety Report 9375473 (Version 4)
Quarter: 2013Q3

REPORT INFORMATION
  Report Type: Spontaneous
  Country: DK (occurrence: DK)
  Receive Date: 20130628
  Receipt Date: 20130723
  Transmission Date: 20140515
  Serious: Yes (Other)
  Sender: FDA-Public Use
  Company Number: DK-GLAXOSMITHKLINE-B0903847A

PATIENT
  Sex: Female

DRUGS (6)
  1. TYVERB [Suspect]
     Indication: BREAST CANCER
     Route: 065
     Dates: start: 20120625
  2. TAXOL [Suspect]
     Indication: BREAST CANCER
     Route: 065
     Dates: start: 20110922
  3. HERCEPTIN [Suspect]
     Indication: BREAST CANCER
     Route: 065
     Dates: start: 20110922
  4. XELODA [Suspect]
     Indication: BREAST CANCER
     Route: 065
     Dates: start: 20120625
  5. NAVELBINE [Suspect]
     Indication: BREAST CANCER
     Route: 065
     Dates: start: 20120423
  6. EPIRUBICIN [Suspect]
     Indication: BREAST CANCER
     Route: 065

REACTIONS (2)
  - Disease progression [Not Recovered/Not Resolved]
  - Hepatic enzyme increased [Unknown]
